FAERS Safety Report 19855337 (Version 1)
Quarter: 2021Q3

REPORT INFORMATION
  Report Type: Spontaneous
  Country: US (occurrence: US)
  Receive Date: 20210917
  Receipt Date: 20210917
  Transmission Date: 20211014
  Serious: No
  Sender: FDA-Public Use
  Company Number: None

PATIENT
  Age: 74 Year
  Sex: Male
  Weight: 138.8 kg

DRUGS (1)
  1. ERLEADA [Suspect]
     Active Substance: APALUTAMIDE
     Indication: CARCINOID TUMOUR OF THE PROSTATE
     Dosage: ?          OTHER DOSE:4 TABLETS;?
     Route: 048
     Dates: start: 202101

REACTIONS (1)
  - COVID-19 [None]
